FAERS Safety Report 5265295-3 (Version None)
Quarter: 2007Q1

REPORT INFORMATION
  Report Type: 
  Country: None (occurrence: None)
  Receive Date: 20061214
  Receipt Date: 20051117
  Transmission Date: 20070707
  Serious: Yes (Other)
  Sender: FDA-Public Use
  Company Number: 2005UW17517

PATIENT
  Age: 8 Month
  Sex: Male

DRUGS (1)
  1. PULMICORT RESPULES [Suspect]
     Dosage: 0.5 MG Q4-6H IH
     Route: 055

REACTIONS (3)
  - ACCIDENTAL OVERDOSE [None]
  - DIARRHOEA [None]
  - MEDICATION ERROR [None]
